FAERS Safety Report 4380085-1 (Version None)
Quarter: 2004Q2

REPORT INFORMATION
  Report Type: 
  Country: None (occurrence: None)
  Receive Date: 20040617
  Receipt Date: 20040503
  Transmission Date: 20050107
  Serious: Yes (Death, Life-Threatening, Hospitalization, Disabling)
  Sender: FDA-Public Use
  Company Number: US-MERCK-0405USA00114

PATIENT
  Age: 45 Year
  Sex: Male
  Weight: 100 kg

DRUGS (10)
  1. ASPIRIN [Concomitant]
     Indication: PROPHYLAXIS
     Route: 048
  2. LIPITOR [Concomitant]
     Indication: BLOOD CHOLESTEROL INCREASED
     Route: 048
  3. HYDROCHLOROTHIAZIDE [Concomitant]
     Indication: HYPERTENSION
     Route: 048
  4. AVAPRO [Concomitant]
     Indication: HYPERTENSION
     Route: 048
  5. LEUCOVORIN CALCIUM [Concomitant]
     Route: 065
  6. METHOTREXATE [Concomitant]
     Route: 065
  7. TOPROL-XL [Concomitant]
     Indication: HYPERTENSION
     Route: 048
  8. ZANTAC [Concomitant]
     Route: 065
  9. VIOXX [Suspect]
     Indication: PAIN MANAGEMENT
     Route: 048
     Dates: start: 20040401, end: 20040401
  10. VIOXX [Suspect]
     Indication: RHEUMATOID ARTHRITIS
     Route: 048
     Dates: start: 20040401, end: 20040401

REACTIONS (1)
  - ACUTE MYOCARDIAL INFARCTION [None]
